FAERS Safety Report 17982995 (Version 1)
Quarter: 2020Q3

REPORT INFORMATION
  Report Type: Spontaneous
  Country: US (occurrence: US)
  Receive Date: 20200703
  Receipt Date: 20200703
  Transmission Date: 20201103
  Serious: Yes (Hospitalization)
  Sender: FDA-Public Use
  Company Number: None

PATIENT
  Age: 74 Year
  Sex: Male
  Weight: 68.49 kg

DRUGS (2)
  1. WARFARIN (WARFARIN NA (EXELAN) 2.5MG TAB) [Suspect]
     Active Substance: WARFARIN SODIUM
     Indication: DEVICE OCCLUSION
  2. WARFARIN (WARFARIN NA (EXELAN) 2.5MG TAB) [Suspect]
     Active Substance: WARFARIN SODIUM
     Indication: PERIPHERAL VASCULAR DISORDER
     Dates: start: 20080424, end: 20191206

REACTIONS (5)
  - Haemoptysis [None]
  - Haemorrhage [None]
  - Malignant neoplasm progression [None]
  - Pneumonia aspiration [None]
  - Lung neoplasm malignant [None]

NARRATIVE: CASE EVENT DATE: 20191130
